FAERS Safety Report 9187010 (Version 2)
Quarter: 2013Q1

REPORT INFORMATION
  Report Type: Spontaneous
  Country: FR (occurrence: FR)
  Receive Date: 20130325
  Receipt Date: 20130325
  Transmission Date: 20140127
  Serious: Yes (Other)
  Sender: FDA-Public Use
  Company Number: FR-TEVA-252627ISR

PATIENT
  Sex: Male

DRUGS (5)
  1. VALPROATE SODIUM [Suspect]
     Indication: EPILEPSY
     Dosage: 1250 MILLIGRAM DAILY;
     Route: 048
     Dates: start: 20070813, end: 20091026
  2. METFORMIN [Concomitant]
  3. KENZEN [Concomitant]
  4. PLAVIX [Concomitant]
  5. PERMIXON [Concomitant]

REACTIONS (6)
  - Nightmare [Recovered/Resolved]
  - Sleep disorder [Recovered/Resolved]
  - Abnormal behaviour [Recovered/Resolved]
  - Aggression [None]
  - Product substitution issue [None]
  - Product quality issue [None]
